FAERS Safety Report 6164075-4 (Version None)
Quarter: 2009Q2

REPORT INFORMATION
  Report Type: 
  Country: None (occurrence: None)
  Receive Date: 20090422
  Receipt Date: 20090415
  Transmission Date: 20091009
  Serious: Yes (Death, Hospitalization)
  Sender: FDA-Public Use
  Company Number: A0764891A

PATIENT
  Age: 65 Year
  Sex: Female

DRUGS (15)
  1. SEREVENT [Suspect]
     Indication: DRUG USE FOR UNKNOWN INDICATION
     Route: 055
  2. ADVAIR HFA [Suspect]
     Indication: DRUG USE FOR UNKNOWN INDICATION
     Route: 055
  3. FLOVENT [Concomitant]
  4. SINGULAIR [Concomitant]
  5. ATROVENT [Concomitant]
  6. ZYRTEC [Concomitant]
  7. MAXAIR [Concomitant]
  8. TRANXENE [Concomitant]
  9. PREMARIN [Concomitant]
  10. SYNTHROID [Concomitant]
  11. CARDIZEM [Concomitant]
  12. PREDNISONE [Concomitant]
  13. SLO-K [Concomitant]
  14. ALBUTEROL [Concomitant]
  15. VANCERIL [Concomitant]

REACTIONS (6)
  - ASTHMA [None]
  - CARDIO-RESPIRATORY ARREST [None]
  - CHRONIC OBSTRUCTIVE PULMONARY DISEASE [None]
  - PNEUMONIA [None]
  - RENAL FAILURE ACUTE [None]
  - RESPIRATORY FAILURE [None]
